FAERS Safety Report 19119617 (Version 3)
Quarter: 2021Q2

REPORT INFORMATION
  Report Type: Report from Study
  Country: US (occurrence: US)
  Receive Date: 20210412
  Receipt Date: 20210518
  Transmission Date: 20210717
  Serious: Yes (Other)
  Sender: FDA-Public Use
  Company Number: US-ADVANZ PHARMA-202104002563

PATIENT

DRUGS (10)
  1. HYDROXYCHLOROQUINE SULFATE (AUTHORIZED GENERIC),PLAQUENIL [Suspect]
     Active Substance: HYDROXYCHLOROQUINE SULFATE
     Indication: RHEUMATOID ARTHRITIS
     Dosage: 200 MG, 1 IN 2 WEEKS
     Route: 048
     Dates: start: 1997, end: 202001
  2. LISINOPRIL HCTZ [Concomitant]
     Active Substance: HYDROCHLOROTHIAZIDE\LISINOPRIL
     Indication: HYPERTENSION
     Dosage: UNK
  3. LISINOPRIL HCTZ [Concomitant]
     Active Substance: HYDROCHLOROTHIAZIDE\LISINOPRIL
     Indication: POLYURIA
  4. SALAGEN (PILOCARPINE HYDROCHLORIDE) [Concomitant]
     Indication: SJOGREN^S SYNDROME
     Dosage: UNK
  5. FLONASE [Concomitant]
     Active Substance: FLUTICASONE PROPIONATE
     Indication: HYPERSENSITIVITY
     Dosage: UNK
  6. HUMIRA [Suspect]
     Active Substance: ADALIMUMAB
     Indication: RHEUMATOID ARTHRITIS
     Dosage: 40 MG, 1 IN 2 WEEKS
     Route: 058
     Dates: start: 2011
  7. HUMIRA [Suspect]
     Active Substance: ADALIMUMAB
     Indication: RHEUMATOID ARTHRITIS
     Dosage: UNK
     Route: 058
  8. AMLODIPINE [Concomitant]
     Active Substance: AMLODIPINE BESYLATE
     Indication: HYPERTENSION
     Dosage: UNK
  9. COVID?19 VACCINE NOS. [Concomitant]
     Active Substance: COVID-19 VACCINE NOS
     Dosage: SECOND DOSE, PFIZER
     Dates: start: 20210428
  10. COVID?19 VACCINE NOS. [Concomitant]
     Active Substance: COVID-19 VACCINE NOS
     Indication: COVID-19 IMMUNISATION
     Dosage: FIRST DOSE, 1 IN 1 ONCE,  PFIZER
     Route: 030
     Dates: start: 20210407

REACTIONS (7)
  - Toxicity to various agents [Recovered/Resolved]
  - Sjogren^s syndrome [Unknown]
  - Large intestine polyp [Unknown]
  - Retinal thickening [Not Recovered/Not Resolved]
  - Retinal toxicity [Not Recovered/Not Resolved]
  - Macular fibrosis [Recovering/Resolving]
  - Rash [Recovering/Resolving]

NARRATIVE: CASE EVENT DATE: 201912
